FAERS Safety Report 4849084-7 (Version None)
Quarter: 2005Q4

REPORT INFORMATION
  Report Type: 
  Country: None (occurrence: None)
  Receive Date: 20051209
  Receipt Date: 20051206
  Transmission Date: 20060501
  Serious: Yes (Life-Threatening, Hospitalization)
  Sender: FDA-Public Use
  Company Number: 2005CG02023

PATIENT
  Age: 15 Year
  Sex: Female

DRUGS (14)
  1. MOPRAL [Suspect]
     Indication: NAUSEA
     Route: 048
     Dates: start: 20050917
  2. MOPRAL [Interacting]
     Indication: VOMITING
     Route: 048
     Dates: start: 20050917
  3. VFEND [Interacting]
     Indication: ASPERGILLOSIS
     Route: 042
     Dates: start: 20050911, end: 20050929
  4. NOXAFIL [Interacting]
     Indication: ASPERGILLOSIS
     Route: 048
     Dates: start: 20050930, end: 20050930
  5. CANCIDAS [Concomitant]
     Indication: ASPERGILLOSIS
     Route: 042
     Dates: start: 20050921
  6. MYCOSTATIN [Concomitant]
     Indication: SKIN CANDIDA
     Route: 048
     Dates: start: 20050917, end: 20050929
  7. AMBISOME [Concomitant]
     Indication: ASPERGILLOSIS
     Route: 042
     Dates: start: 20050911, end: 20050926
  8. ARACYTINE [Concomitant]
     Indication: ACUTE MYELOID LEUKAEMIA
     Dates: start: 20050823
  9. METHOTREXATE [Concomitant]
     Indication: ACUTE MYELOID LEUKAEMIA
     Dates: start: 20050823
  10. NOVANTRONE [Concomitant]
     Indication: ACUTE MYELOID LEUKAEMIA
     Dates: start: 20050823
  11. FORTUM [Concomitant]
     Indication: FEBRILE BONE MARROW APLASIA
     Dates: start: 20050911
  12. FORTUM [Concomitant]
     Indication: RASH ERYTHEMATOUS
     Dates: start: 20050911
  13. TARGOCID [Concomitant]
     Indication: FEBRILE BONE MARROW APLASIA
     Dates: start: 20050911
  14. TARGOCID [Concomitant]
     Indication: RASH ERYTHEMATOUS
     Dates: start: 20050911

REACTIONS (6)
  - CANDIDIASIS [None]
  - DRUG INTERACTION [None]
  - NAUSEA [None]
  - TORSADE DE POINTES [None]
  - VENTRICULAR TACHYCARDIA [None]
  - VOMITING [None]
